FAERS Safety Report 21459502 (Version 3)
Quarter: 2023Q1

REPORT INFORMATION
  Report Type: Report from Study
  Country: US (occurrence: US)
  Receive Date: 20221014
  Receipt Date: 20230214
  Transmission Date: 20230417
  Serious: Yes (Other)
  Sender: FDA-Public Use
  Company Number: US-ABBVIE-4147224

PATIENT
  Sex: Female

DRUGS (6)
  1. ORILISSA [Suspect]
     Active Substance: ELAGOLIX SODIUM
     Indication: Product used for unknown indication
     Route: 048
     Dates: start: 2019, end: 2019
  2. ORILISSA [Suspect]
     Active Substance: ELAGOLIX SODIUM
     Indication: Product used for unknown indication
     Route: 048
     Dates: start: 20221002
  3. ORILISSA [Suspect]
     Active Substance: ELAGOLIX SODIUM
     Indication: Product used for unknown indication
     Dosage: LAST ADMIN DATE- OCT 2022
     Route: 048
     Dates: start: 20221001
  4. MODERNA COVID-19 VACCINE [Concomitant]
     Active Substance: ELASOMERAN
     Indication: COVID-19 immunisation
     Dosage: 1 IN ONCE, FIRST DOSE
     Route: 030
     Dates: start: 20210116, end: 20210116
  5. MODERNA COVID-19 VACCINE [Concomitant]
     Active Substance: ELASOMERAN
     Indication: COVID-19 immunisation
     Dosage: 1 IN ONCE, SECOND DOSE
     Route: 030
     Dates: start: 20210213, end: 20210213
  6. MODERNA COVID-19 VACCINE [Concomitant]
     Active Substance: ELASOMERAN
     Indication: COVID-19 immunisation
     Dosage: 1 IN ONCE, THIRD DOSE
     Route: 030
     Dates: start: 20210819, end: 20210819

REACTIONS (9)
  - Suicidal ideation [Recovered/Resolved]
  - Dyspepsia [Not Recovered/Not Resolved]
  - Back pain [Not Recovered/Not Resolved]
  - Anal incontinence [Not Recovered/Not Resolved]
  - Cardiac disorder [Unknown]
  - Functional gastrointestinal disorder [Not Recovered/Not Resolved]
  - Intermenstrual bleeding [Not Recovered/Not Resolved]
  - Neuralgia [Not Recovered/Not Resolved]
  - Urinary incontinence [Not Recovered/Not Resolved]
